FAERS Safety Report 5596867-4 (Version None)
Quarter: 2008Q1

REPORT INFORMATION
  Report Type: 
  Country: None (occurrence: None)
  Receive Date: 20080119
  Receipt Date: 20080110
  Transmission Date: 20080703
  Serious: Yes (Other)
  Sender: FDA-Public Use
  Company Number: FR-PFIZER INC-2008004032

PATIENT
  Age: 34 Year
  Sex: Male

DRUGS (1)
  1. TAHOR [Suspect]
     Indication: MYOCARDIAL INFARCTION

REACTIONS (2)
  - CHOLESTASIS [None]
  - CYTOLYTIC HEPATITIS [None]
